FAERS Safety Report 14492967 (Version 1)
Quarter: 2018Q1

REPORT INFORMATION
  Report Type: Spontaneous
  Country: US (occurrence: US)
  Receive Date: 20180206
  Receipt Date: 20180206
  Transmission Date: 20180509
  Serious: No
  Sender: FDA-Public Use
  Company Number: US-JNJFOC-20171220614

PATIENT
  Age: 19 Year
  Sex: Male
  Weight: 108.86 kg

DRUGS (1)
  1. INVEGA [Suspect]
     Active Substance: PALIPERIDONE
     Indication: AFFECTIVE DISORDER
     Route: 048

REACTIONS (4)
  - Drug dose omission [Unknown]
  - Off label use [Unknown]
  - Product use in unapproved indication [Unknown]
  - Disturbance in social behaviour [Unknown]

NARRATIVE: CASE EVENT DATE: 20171211
